FAERS Safety Report 24754627 (Version 2)
Quarter: 2025Q1

REPORT INFORMATION
  Report Type: Report from Study
  Country: US (occurrence: US)
  Receive Date: 20241219
  Receipt Date: 20250321
  Transmission Date: 20250409
  Serious: No
  Sender: SANDOZ
  Company Number: US-SANDOZ-SDZ2024US103285

PATIENT
  Age: 8 Year
  Sex: Male

DRUGS (2)
  1. OMNITROPE [Suspect]
     Active Substance: SOMATROPIN
     Indication: Short stature
     Dosage: 0.18 ML, QD
     Route: 058
     Dates: start: 20241211
  2. OMNITROPE [Suspect]
     Active Substance: SOMATROPIN
     Indication: Short stature
     Dosage: 0.18 ML, QD
     Route: 058
     Dates: start: 20241211

REACTIONS (5)
  - Skin swelling [Recovered/Resolved]
  - Fatigue [Unknown]
  - Injection site pain [Unknown]
  - Device use error [Unknown]
  - Product contamination [Unknown]

NARRATIVE: CASE EVENT DATE: 20241211
